FAERS Safety Report 7652109-7 (Version None)
Quarter: 2011Q3

REPORT INFORMATION
  Report Type: 
  Country: None (occurrence: None)
  Receive Date: 20110803
  Receipt Date: 20110726
  Transmission Date: 20111222
  Serious: Yes (Death)
  Sender: FDA-Public Use
  Company Number: GB-CELGENEUS-167-20785-11072816

PATIENT
  Age: 28 Year
  Sex: Male

DRUGS (4)
  1. THALIDOMIDE [Suspect]
     Dosage: 50 MILLIGRAM
     Route: 048
     Dates: start: 20110416
  2. CYCLOPHOSPHAMIDE [Concomitant]
     Route: 065
  3. DEXAMETHASONE [Concomitant]
     Route: 065
  4. THALIDOMIDE [Suspect]
     Dosage: 25 MILLIGRAM
     Route: 048

REACTIONS (2)
  - MYOCARDIAL INFARCTION [None]
  - EMBOLISM [None]
